FAERS Safety Report 16667055 (Version 3)
Quarter: 2020Q3

REPORT INFORMATION
  Report Type: Spontaneous
  Country: US (occurrence: US)
  Receive Date: 20190805
  Receipt Date: 20200819
  Transmission Date: 20201102
  Serious: Yes (Other)
  Sender: FDA-Public Use
  Company Number: US-GILEAD-2019-0421697

PATIENT
  Age: 50 Year
  Sex: Female

DRUGS (59)
  1. TRUVADA [Suspect]
     Active Substance: EMTRICITABINE\TENOFOVIR DISOPROXIL FUMARATE
     Dosage: 1 DOSAGE FORM, QD
     Route: 048
     Dates: start: 2008, end: 201703
  2. MORPHINE SULFATE. [Concomitant]
     Active Substance: MORPHINE SULFATE
  3. THERA?M [Concomitant]
  4. OMEPRAZOLE. [Concomitant]
     Active Substance: OMEPRAZOLE
  5. CLARITHROMYCIN. [Concomitant]
     Active Substance: CLARITHROMYCIN
  6. DOCUSATE [Concomitant]
     Active Substance: DOCUSATE
  7. IBUPROFEN. [Concomitant]
     Active Substance: IBUPROFEN
  8. AMMONIUM LACTATE. [Concomitant]
     Active Substance: AMMONIUM LACTATE
  9. NORVIR [Concomitant]
     Active Substance: RITONAVIR
  10. NICOTROL [Concomitant]
     Active Substance: NICOTINE
  11. DRONABINOL. [Concomitant]
     Active Substance: DRONABINOL
  12. OXYCODONE/APAP [OXYCODONE HYDROCHLORIDE;PARACETAMOL] [Concomitant]
  13. CITRACAL + D [CALCIUM CITRATE;COLECALCIFEROL] [Concomitant]
     Active Substance: CALCIUM CITRATE\CHOLECALCIFEROL
  14. MECLIZINE HCL [Concomitant]
     Active Substance: MECLIZINE HYDROCHLORIDE
  15. TERCONAZOLE. [Concomitant]
     Active Substance: TERCONAZOLE
  16. LOPERAMIDE [Concomitant]
     Active Substance: LOPERAMIDE
  17. CEFADROXIL. [Concomitant]
     Active Substance: CEFADROXIL
  18. OXYCODONE HYDROCHLORIDE. [Concomitant]
     Active Substance: OXYCODONE HYDROCHLORIDE
  19. AMOXI?CLAV [Concomitant]
     Active Substance: AMOXICILLIN\CLAVULANATE POTASSIUM
  20. LORATADINE. [Concomitant]
     Active Substance: LORATADINE
  21. SERTRALINE HCL [Concomitant]
     Active Substance: SERTRALINE HYDROCHLORIDE
  22. TIVICAY [Concomitant]
     Active Substance: DOLUTEGRAVIR SODIUM
  23. AMOXICILLIN. [Concomitant]
     Active Substance: AMOXICILLIN
  24. TERBINAFINE. [Concomitant]
     Active Substance: TERBINAFINE
  25. SENNA TABS [Concomitant]
     Active Substance: SENNOSIDES A AND B
  26. TRIXAICIN [Concomitant]
     Active Substance: CAPSICUM OLEORESIN
  27. ASPIRIN 81 [Concomitant]
     Active Substance: ASPIRIN
  28. VOLTAREN ACTI [Concomitant]
     Active Substance: DICLOFENAC POTASSIUM
  29. REYATAZ [Concomitant]
     Active Substance: ATAZANAVIR SULFATE
  30. PEPTIC RELIEF [BISMUTH SUBSALICYLATE] [Concomitant]
  31. TRAZODONE [Concomitant]
     Active Substance: TRAZODONE HYDROCHLORIDE
  32. Q?TUSSIN [Concomitant]
     Active Substance: GUAIFENESIN
  33. TIZANIDINE HYDROCHLORIDE. [Concomitant]
     Active Substance: TIZANIDINE HYDROCHLORIDE
  34. NAPROXEN. [Concomitant]
     Active Substance: NAPROXEN
  35. DICLOFENAC SODIUM. [Concomitant]
     Active Substance: DICLOFENAC SODIUM
  36. NICOTINE TRANSDERMAL SYSTEM [Concomitant]
     Active Substance: NICOTINE
  37. MOBIC [Concomitant]
     Active Substance: MELOXICAM
  38. DESCOVY [Concomitant]
     Active Substance: EMTRICITABINE\TENOFOVIR ALAFENAMIDE FUMARATE
  39. SALINE NASAL MIST [Concomitant]
  40. CENTRUM SILVER PRO [Concomitant]
  41. CICLOPIROX. [Concomitant]
     Active Substance: CICLOPIROX
  42. LEVOFLOXACIN. [Concomitant]
     Active Substance: LEVOFLOXACIN
  43. ENOXAPARIN [Concomitant]
     Active Substance: ENOXAPARIN
  44. METHYLPREDNISOLONE. [Concomitant]
     Active Substance: METHYLPREDNISOLONE
  45. TRUVADA [Suspect]
     Active Substance: EMTRICITABINE\TENOFOVIR DISOPROXIL FUMARATE
     Indication: HIV INFECTION
     Dosage: 1 DOSAGE FORM, QD
     Route: 048
     Dates: start: 2008, end: 201703
  46. MIRTAZAPINE. [Concomitant]
     Active Substance: MIRTAZAPINE
  47. MELOXICAM. [Concomitant]
     Active Substance: MELOXICAM
  48. ENDOCET [Concomitant]
     Active Substance: ACETAMINOPHEN\OXYCODONE HYDROCHLORIDE
  49. VITAMIN D3 [Concomitant]
     Active Substance: CHOLECALCIFEROL
  50. OYSTER SHELL CALCIUM [Concomitant]
     Active Substance: CALCIUM
  51. CLOTRIMAZOLE. [Concomitant]
     Active Substance: CLOTRIMAZOLE
  52. CRUEX [CALCIUM UNDECENOATE] [Concomitant]
  53. ANASTROZOLE. [Concomitant]
     Active Substance: ANASTROZOLE
  54. BACITRACIN. [Concomitant]
     Active Substance: BACITRACIN
  55. CIPROFLOXACIN. [Concomitant]
     Active Substance: CIPROFLOXACIN
  56. DIAZEPAM. [Concomitant]
     Active Substance: DIAZEPAM
  57. BISMATROL [Concomitant]
     Active Substance: BISMUTH SUBSALICYLATE
  58. MAGNESIUM OXIDE. [Concomitant]
     Active Substance: MAGNESIUM OXIDE
  59. ROXICODONE [Concomitant]
     Active Substance: OXYCODONE HYDROCHLORIDE

REACTIONS (7)
  - Bone loss [Unknown]
  - Osteonecrosis [Not Recovered/Not Resolved]
  - Anxiety [Unknown]
  - Economic problem [Unknown]
  - Emotional distress [Unknown]
  - Pain [Unknown]
  - Anhedonia [Unknown]

NARRATIVE: CASE EVENT DATE: 20150518
